FAERS Safety Report 8494792-2 (Version None)
Quarter: 2012Q2

REPORT INFORMATION
  Report Type: 
  Country: None (occurrence: None)
  Receive Date: 20120628
  Receipt Date: 20120611
  Transmission Date: 20120825
  Serious: Yes (Hospitalization)
  Sender: FDA-Public Use
  Company Number: 54973 AE # 906

PATIENT
  Age: 20 Month
  Sex: Female

DRUGS (1)
  1. HYLAND'S BABY TEETHING TABLETS [Suspect]
     Indication: TEETHING

REACTIONS (5)
  - SPEECH DISORDER [None]
  - PYREXIA [None]
  - MENTAL STATUS CHANGES [None]
  - MUSCULAR WEAKNESS [None]
  - GAIT DISTURBANCE [None]
